FAERS Safety Report 24547509 (Version 1)
Quarter: 2024Q4

REPORT INFORMATION
  Report Type: Spontaneous
  Country: US (occurrence: US)
  Receive Date: 20241025
  Receipt Date: 20241025
  Transmission Date: 20250115
  Serious: No
  Sender: DR REDDYS
  Company Number: None

PATIENT
  Age: 76 Year
  Sex: Male

DRUGS (4)
  1. IBUPROFEN [Suspect]
     Active Substance: IBUPROFEN
     Indication: Back pain
     Dosage: TAKING 600 TO 1,200 MG IBUPROFEN DAILY FOR MORE THAN 1 YEAR
  2. IBUPROFEN [Suspect]
     Active Substance: IBUPROFEN
     Dosage: TAKING 600 TO 1,200 MG IBUPROFEN DAILY FOR MORE THAN 1 YEAR
  3. GABAPENTIN [Concomitant]
     Active Substance: GABAPENTIN
     Indication: Sleep disorder
  4. VITAMINS [Concomitant]
     Active Substance: VITAMINS
     Indication: Product used for unknown indication
     Dosage: DAILY

REACTIONS (1)
  - Fixed eruption [Recovered/Resolved]
